FAERS Safety Report 10257222 (Version 2)
Quarter: 2014Q2

REPORT INFORMATION
  Report Type: Spontaneous
  Country: CA (occurrence: CA)
  Receive Date: 20140625
  Receipt Date: 20140625
  Transmission Date: 20141212
  Serious: Yes (Hospitalization, Other)
  Sender: FDA-Public Use
  Company Number: CA-ELI_LILLY_AND_COMPANY-CA201201002324

PATIENT
  Age: 34 Year
  Sex: Female
  Weight: 68.48 kg

DRUGS (8)
  1. ZYPREXA [Suspect]
     Indication: PSYCHOTIC DISORDER
     Dosage: 7.5 MG, QD
     Route: 065
  2. RISPERDAL CONSTA [Suspect]
     Indication: PSYCHOTIC DISORDER
     Dosage: 37.5 MG, 2/M
     Route: 030
  3. RISPERDAL CONSTA [Suspect]
     Dosage: 25 MG, ONCE EVERY TWO WEEKS
     Route: 030
     Dates: end: 201002
  4. RISPERIDONE [Suspect]
     Indication: PSYCHOTIC DISORDER
     Dosage: 0.5 MG, UNKNOWN
     Route: 065
  5. ATIVAN [Suspect]
     Indication: PSYCHOTIC DISORDER
     Dosage: 1 MG, PRN
     Route: 065
  6. SEROQUEL XR [Suspect]
     Indication: PSYCHOTIC DISORDER
     Dosage: 400 MG, QD
     Route: 065
  7. SEROQUEL [Suspect]
     Indication: PSYCHOTIC DISORDER
     Dosage: 100 MG, QD
     Route: 065
  8. SEROQUEL [Suspect]
     Dosage: 100 MG, BID
     Route: 065

REACTIONS (4)
  - Pituitary tumour benign [Unknown]
  - Amenorrhoea [Unknown]
  - Blood prolactin increased [Unknown]
  - Blood cholesterol increased [Unknown]
